FAERS Safety Report 10421193 (Version 3)
Quarter: 2016Q2

REPORT INFORMATION
  Report Type: Report from Study
  Country: DE (occurrence: DE)
  Receive Date: 20140830
  Receipt Date: 20160504
  Transmission Date: 20160815
  Serious: Yes (Hospitalization)
  Sender: FDA-Public Use
  Company Number: DE-AMGEN-DEUCT2014064218

PATIENT
  Age: 66 Year
  Sex: Male
  Weight: 82 kg

DRUGS (20)
  1. VESIKUR [Concomitant]
     Active Substance: SOLIFENACIN SUCCINATE
     Dosage: 5 MG, 1X/DAY
     Route: 048
  2. PREDNISOLON                        /00016201/ [Concomitant]
     Active Substance: PREDNISOLONE
     Indication: RHEUMATOID ARTHRITIS
     Dosage: 7.5 MG, 1X/DAY
     Route: 048
     Dates: start: 200911
  3. FALITHROM [Concomitant]
     Active Substance: PHENPROCOUMON
     Dosage: UNK
  4. METFORMIN [Concomitant]
     Active Substance: METFORMIN HYDROCHLORIDE
     Indication: DIABETES MELLITUS
     Dosage: 500 MG, 2X/DAY
     Route: 048
  5. PALEXIA [Concomitant]
     Active Substance: TAPENTADOL HYDROCHLORIDE
     Dosage: 50 MG, 1X/DAY (IN THE EVENING)
     Route: 048
  6. PLASTUFER [Concomitant]
     Indication: PROPHYLAXIS
     Dosage: 100 MG, 1X/DAY
     Route: 048
     Dates: start: 201407
  7. TAMSULOSIN [Concomitant]
     Active Substance: TAMSULOSIN
     Indication: ESSENTIAL HYPERTENSION
     Dosage: 0.4 MG, 1X/DAY
     Route: 048
     Dates: start: 201407
  8. RAMIPRIL. [Concomitant]
     Active Substance: RAMIPRIL
     Indication: ESSENTIAL HYPERTENSION
     Dosage: 5 MG, 1X/DAY
     Route: 048
     Dates: start: 200911
  9. METFORMIN [Concomitant]
     Active Substance: METFORMIN HYDROCHLORIDE
     Indication: DIABETES MELLITUS
     Dosage: 500 MG, 2X/DAY
     Route: 048
  10. PREDNISOLON                        /00016201/ [Concomitant]
     Active Substance: PREDNISOLONE
     Indication: RHEUMATOID ARTHRITIS
     Dosage: 7.5 MG, 1X/DAY
     Route: 048
     Dates: start: 200911
  11. ETANERCEPT [Suspect]
     Active Substance: ETANERCEPT
     Indication: PRODUCT USED FOR UNKNOWN INDICATION
     Dosage: 50 MG, QWK
     Route: 065
     Dates: start: 20140521
  12. PANTOPRAZOLE [Concomitant]
     Active Substance: PANTOPRAZOLE SODIUM
     Indication: PROPHYLAXIS
     Dosage: 40 MG, 1X/DAY
     Route: 048
  13. NITRENDIPINE [Concomitant]
     Active Substance: NITRENDIPINE
     Indication: ESSENTIAL HYPERTENSION
     Dosage: 20 MG, 2X/DAY
     Route: 048
  14. PANTO                              /00223901/ [Concomitant]
     Indication: PROPHYLAXIS
     Dosage: 40 MG, 1X/DAY
     Route: 048
  15. DEKRISTOL [Concomitant]
     Active Substance: CHOLECALCIFEROL
     Indication: OSTEOARTHRITIS
     Dosage: 20000 IU, WEEKLY
     Route: 048
     Dates: start: 201003
  16. BISOPROLOL [Concomitant]
     Active Substance: BISOPROLOL
     Indication: ESSENTIAL HYPERTENSION
     Dosage: 7.5 MG, 1X/DAY
     Route: 048
     Dates: start: 200911
  17. FENISTIL [Concomitant]
     Active Substance: DIMETHINDENE
     Dosage: UNK
     Dates: start: 201407
  18. TORASEMIDE [Concomitant]
     Active Substance: TORSEMIDE
     Indication: ESSENTIAL HYPERTENSION
     Dosage: 10 MG, 1X/DAY
     Route: 048
     Dates: start: 200911
  19. NITRENDIPINE [Concomitant]
     Active Substance: NITRENDIPINE
     Dosage: 20 MG, 2X/DAY
     Route: 048
  20. PALEXIA [Concomitant]
     Active Substance: TAPENTADOL HYDROCHLORIDE
     Indication: RHEUMATOID ARTHRITIS
     Dosage: 100 MG, 1X/DAY (IN THE MORNING)
     Route: 048
     Dates: start: 201407

REACTIONS (1)
  - Bursitis infective [Recovering/Resolving]

NARRATIVE: CASE EVENT DATE: 20140707
